FAERS Safety Report 25592031 (Version 1)
Quarter: 2025Q3

REPORT INFORMATION
  Report Type: Spontaneous
  Country: CA (occurrence: CA)
  Receive Date: 20250722
  Receipt Date: 20250722
  Transmission Date: 20251021
  Serious: Yes (Hospitalization, Other)
  Sender: GILEAD
  Company Number: CA-GILEAD-2025-0720943

PATIENT
  Sex: Male

DRUGS (2)
  1. LENACAPAVIR [Suspect]
     Active Substance: LENACAPAVIR
     Indication: HIV infection
     Route: 065
  2. CABOTEGRAVIR [Concomitant]
     Active Substance: CABOTEGRAVIR
     Indication: HIV infection

REACTIONS (1)
  - Immune reconstitution inflammatory syndrome [Recovered/Resolved]

NARRATIVE: CASE EVENT DATE: 20241115
